FAERS Safety Report 21163462 (Version 1)
Quarter: 2022Q3

REPORT INFORMATION
  Report Type: Spontaneous
  Country: NL (occurrence: NL)
  Receive Date: 20220802
  Receipt Date: 20220802
  Transmission Date: 20221026
  Serious: Yes (Other)
  Sender: FDA-Public Use
  Company Number: NL-AMGEN-NLDSP2022125481

PATIENT
  Age: 62 Year
  Sex: Male

DRUGS (3)
  1. ADALIMUMAB [Suspect]
     Active Substance: ADALIMUMAB
     Indication: Product used for unknown indication
     Route: 065
  2. AZITHROMYCIN [Suspect]
     Active Substance: AZITHROMYCIN
     Indication: Arthritis reactive
     Route: 065
  3. PREDNISONE [Suspect]
     Active Substance: PREDNISONE
     Indication: Cogan^s syndrome
     Route: 048

REACTIONS (17)
  - Keratitis interstitial [Unknown]
  - Aortitis [Unknown]
  - Arthritis reactive [Unknown]
  - Cogan^s syndrome [Unknown]
  - Neoplasm malignant [Unknown]
  - Weight decreased [Unknown]
  - Vasculitis [Unknown]
  - Arthralgia [Unknown]
  - Pyrexia [Recovered/Resolved]
  - Viral infection [Unknown]
  - Conjunctivitis [Unknown]
  - Ear, nose and throat disorder [Unknown]
  - Testicular pain [Unknown]
  - Inflammation [Unknown]
  - Malaise [Not Recovered/Not Resolved]
  - Testicular swelling [Unknown]
  - Hyperhidrosis [Unknown]
